FAERS Safety Report 15728333 (Version 2)
Quarter: 2018Q4

REPORT INFORMATION
  Report Type: Spontaneous
  Country: JP (occurrence: JP)
  Receive Date: 20181217
  Receipt Date: 20181219
  Transmission Date: 20190205
  Serious: Yes (Death, Other)
  Sender: FDA-Public Use
  Company Number: JP-AMGEN-JPNSP2018180039

PATIENT
  Age: 46 Year
  Sex: Male

DRUGS (4)
  1. EVOCALCET [Suspect]
     Active Substance: EVOCALCET
     Indication: HYPERPARATHYROIDISM SECONDARY
     Dosage: 1 MG, QD
     Route: 048
     Dates: start: 20180829, end: 20180831
  2. REGPARA [Suspect]
     Active Substance: CINACALCET HYDROCHLORIDE
     Indication: PRODUCT USED FOR UNKNOWN INDICATION
     Dosage: 1 MG, QD
     Route: 048
     Dates: start: 20180829, end: 20180831
  3. PARSABIV [Suspect]
     Active Substance: ETELCALCETIDE HYDROCHLORIDE
     Indication: PRODUCT USED FOR UNKNOWN INDICATION
     Dosage: 5 MG, 3 TIMES/WK
     Route: 042
  4. PARSABIV [Suspect]
     Active Substance: ETELCALCETIDE HYDROCHLORIDE
     Dosage: 5 MG, 3X/WEEK
     Route: 042

REACTIONS (4)
  - Nausea [Recovered/Resolved]
  - Nausea [Unknown]
  - Cerebral haemorrhage [Fatal]
  - Diarrhoea [Unknown]

NARRATIVE: CASE EVENT DATE: 20180831
